FAERS Safety Report 10194854 (Version 1)
Quarter: 2014Q2

REPORT INFORMATION
  Report Type: Spontaneous
  Country: US (occurrence: US)
  Receive Date: 20140526
  Receipt Date: 20140526
  Transmission Date: 20141212
  Serious: No
  Sender: FDA-Public Use
  Company Number: US-PFIZER INC-2014139056

PATIENT
  Age: 62 Year
  Sex: Male
  Weight: 63.49 kg

DRUGS (6)
  1. LYRICA [Suspect]
     Indication: HERPES ZOSTER
     Dosage: UNK
     Dates: start: 2007
  2. LYRICA [Suspect]
     Indication: POST HERPETIC NEURALGIA
     Dosage: UNK
  3. LYRICA [Suspect]
     Indication: PAIN
     Dosage: UNK
     Dates: start: 20140513
  4. LYRICA [Suspect]
     Indication: SPINAL CORD INJURY
  5. NADOLOL [Concomitant]
     Indication: HYPERTENSION
     Dosage: 40 MG, DAILY
  6. NIFEDICAL XL [Concomitant]
     Indication: HYPERTENSION
     Dosage: 60 MG, DAILY

REACTIONS (2)
  - Mobility decreased [Unknown]
  - Drug effect incomplete [Unknown]
